FAERS Safety Report 15211237 (Version 1)
Quarter: 2018Q3

REPORT INFORMATION
  Report Type: Spontaneous
  Country: US (occurrence: US)
  Receive Date: 20180630
  Receipt Date: 20180630
  Transmission Date: 20181010
  Serious: No
  Sender: FDA-Public Use
  Company Number: None

PATIENT
  Age: 24 Year
  Sex: Female
  Weight: 80.29 kg

DRUGS (4)
  1. B100 [Concomitant]
     Active Substance: MINERALS\VITAMINS
  2. BENADRYL [Concomitant]
     Active Substance: DIPHENHYDRAMINE HYDROCHLORIDE
  3. MIRENA [Suspect]
     Active Substance: LEVONORGESTREL
     Dates: start: 20171222, end: 20180624
  4. APPLE CIDER VINEGAR [Concomitant]
     Active Substance: APPLE CIDER VINEGAR

REACTIONS (6)
  - Weight increased [None]
  - Mood swings [None]
  - Depression [None]
  - Self esteem decreased [None]
  - Menorrhagia [None]
  - Migraine [None]

NARRATIVE: CASE EVENT DATE: 20171222
